FAERS Safety Report 6724596 (Version 6)
Quarter: 2012Q4

REPORT INFORMATION
  Report Type: 
  Country: US (occurrence: US)
  Receive Date: 20080812
  Receipt Date: 20121123
  Transmission Date: 20130627
  Serious: Yes (Hospitalization, Other)
  Sender: FDA-Public Use
  Company Number: US-ROCHE-552206

PATIENT
  Age: 36 None
  Sex: Male
  Weight: 95.3 kg

DRUGS (3)
  1. ACCUTANE [Suspect]
     Indication: ACNE CYSTIC
     Route: 048
     Dates: start: 20031111, end: 20031209
  2. ACCUTANE [Suspect]
     Route: 048
     Dates: start: 20031210, end: 20040106
  3. ACCUTANE [Suspect]
     Route: 048
     Dates: start: 20040107, end: 20040411

REACTIONS (16)
  - Inflammatory bowel disease [Unknown]
  - Crohn^s disease [Not Recovered/Not Resolved]
  - Colitis [Unknown]
  - Gastrointestinal disorder [Unknown]
  - Colitis ulcerative [Unknown]
  - Suicide attempt [Unknown]
  - Depression [Unknown]
  - Back pain [Not Recovered/Not Resolved]
  - Neck injury [Unknown]
  - Blood triglycerides increased [Unknown]
  - Gastrooesophageal reflux disease [Unknown]
  - Arthralgia [Unknown]
  - Eczema [Unknown]
  - Sinusitis [Unknown]
  - Irritable bowel syndrome [Unknown]
  - Oesophagitis [Unknown]
